FAERS Safety Report 5633028-4 (Version None)
Quarter: 2008Q1

REPORT INFORMATION
  Report Type: 
  Country: None (occurrence: None)
  Receive Date: 20080221
  Receipt Date: 20080121
  Transmission Date: 20080703
  Serious: No
  Sender: FDA-Public Use
  Company Number: US-BAYER-200714094BWH

PATIENT
  Sex: Female

DRUGS (1)
  1. CIPRO [Suspect]
     Indication: PHARYNGOLARYNGEAL DISCOMFORT
     Route: 002

REACTIONS (2)
  - GLOSSODYNIA [None]
  - THROAT IRRITATION [None]
